FAERS Safety Report 17201747 (Version 2)
Quarter: 2020Q1

REPORT INFORMATION
  Report Type: Spontaneous
  Country: JP (occurrence: JP)
  Receive Date: 20191226
  Receipt Date: 20200109
  Transmission Date: 20200409
  Serious: Yes (Other)
  Sender: FDA-Public Use
  Company Number: JP-PFIZER INC-2019546953

PATIENT
  Age: 56 Year
  Sex: Female
  Weight: 44 kg

DRUGS (8)
  1. ZYPREXA [Suspect]
     Active Substance: OLANZAPINE
     Indication: SCHIZOPHRENIA
     Dosage: ONE TIME DOSE: 10, DAILY FREQUENCY: 10
     Route: 048
     Dates: end: 20191124
  2. AMOXAN [Suspect]
     Active Substance: AMOXAPINE
     Indication: SCHIZOPHRENIA
     Dosage: ONE TIME DOSE: 25, DAILY FREQUENCY: 50
     Route: 048
     Dates: start: 201811, end: 20191124
  3. ZYPREXA [Suspect]
     Active Substance: OLANZAPINE
     Indication: AFFECTIVE DISORDER
  4. AMOXAN [Suspect]
     Active Substance: AMOXAPINE
     Indication: AFFECTIVE DISORDER
  5. LIMAS [Suspect]
     Active Substance: LITHIUM CARBONATE
     Indication: SCHIZOPHRENIA
     Dosage: ONE TIME DOSE: 100, DAILY FREQUENCY: 200
     Route: 048
     Dates: start: 201811, end: 20191124
  6. EFFEXOR [Suspect]
     Active Substance: VENLAFAXINE HYDROCHLORIDE
     Indication: AFFECTIVE DISORDER
  7. LIMAS [Suspect]
     Active Substance: LITHIUM CARBONATE
     Indication: AFFECTIVE DISORDER
  8. EFFEXOR [Suspect]
     Active Substance: VENLAFAXINE HYDROCHLORIDE
     Indication: SCHIZOPHRENIA
     Dosage: ONE TIME DOSE:37.5, DAILY FREQUENCY: 37.5
     Route: 048
     Dates: start: 201811, end: 20191124

REACTIONS (3)
  - Product use in unapproved indication [Unknown]
  - Off label use [Unknown]
  - Neuroleptic malignant syndrome [Recovered/Resolved]

NARRATIVE: CASE EVENT DATE: 201811
